FAERS Safety Report 4305208-1 (Version None)
Quarter: 2004Q1

REPORT INFORMATION
  Report Type: 
  Country: None (occurrence: None)
  Receive Date: 20040226
  Receipt Date: 20040223
  Transmission Date: 20041129
  Serious: Yes (Hospitalization, Other)
  Sender: FDA-Public Use
  Company Number: WAES 0402FRA00076

PATIENT
  Age: 67 Year
  Sex: Female

DRUGS (6)
  1. BISOPROLOL FUMARATE [Suspect]
     Indication: HYPERTENSION
     Route: 048
     Dates: start: 19990101, end: 20030901
  2. BISOPROLOL FUMARATE [Suspect]
     Route: 048
     Dates: start: 20030901, end: 20030901
  3. BISOPROLOL FUMARATE [Suspect]
     Route: 048
     Dates: start: 20030901
  4. GENERAL ANESTHESIA (UNSPECIFIED) [Suspect]
     Indication: UTERINE OPERATION
     Route: 042
     Dates: start: 20030901, end: 20030901
  5. COZAAR [Suspect]
     Indication: HYPERTENSION
     Route: 048
     Dates: start: 19990101, end: 20030901
  6. COZAAR [Suspect]
     Route: 048
     Dates: start: 20030901

REACTIONS (2)
  - HYPOTENSION [None]
  - UTERINE POLYP [None]
